FAERS Safety Report 10102988 (Version 2)
Quarter: 2014Q2

REPORT INFORMATION
  Report Type: Spontaneous
  Country: US (occurrence: US)
  Receive Date: 20140424
  Receipt Date: 20140424
  Transmission Date: 20141212
  Serious: Yes (Hospitalization, Other)
  Sender: FDA-Public Use
  Company Number: US-BRISTOL-MYERS SQUIBB COMPANY-20038170

PATIENT
  Age: 78 Year
  Sex: Female

DRUGS (10)
  1. ELIQUIS [Suspect]
     Indication: ATRIAL FIBRILLATION
     Route: 048
     Dates: start: 20131104, end: 20140107
  2. FLECAINIDE [Concomitant]
  3. COREG [Concomitant]
  4. CELEXA [Concomitant]
  5. NIFEDIPINE [Concomitant]
  6. PRAVASTATIN SODIUM [Concomitant]
  7. SEROQUEL [Concomitant]
  8. SPIRONOLACTONE [Concomitant]
  9. HYDROCHLOROTHIAZIDE [Concomitant]
  10. HYDRALAZINE [Concomitant]

REACTIONS (1)
  - Anaphylactic reaction [Recovered/Resolved]
